FAERS Safety Report 7758713-X (Version None)
Quarter: 2011Q3

REPORT INFORMATION
  Report Type: 
  Country: None (occurrence: None)
  Receive Date: 20110919
  Receipt Date: 20100719
  Transmission Date: 20111222
  Serious: No
  Sender: FDA-Public Use
  Company Number: US-BAYER-201030829NA

PATIENT
  Sex: Female

DRUGS (1)
  1. MIRENA [Suspect]
     Indication: MENORRHAGIA
     Dosage: 20 MG/D, CONT
     Route: 058
     Dates: start: 20091101, end: 20100714

REACTIONS (5)
  - POST PROCEDURAL HAEMORRHAGE [None]
  - BREAST PAIN [None]
  - BREAST ENLARGEMENT [None]
  - BREAST MASS [None]
  - CONSTIPATION [None]
